FAERS Safety Report 7064832-6 (Version None)
Quarter: 2010Q4

REPORT INFORMATION
  Report Type: 
  Country: None (occurrence: None)
  Receive Date: 20101021
  Receipt Date: 20101021
  Transmission Date: 20110411
  Serious: No
  Sender: FDA-Public Use
  Company Number: None

PATIENT
  Age: 88 Year
  Sex: Female
  Weight: 55 kg

DRUGS (12)
  1. LEVAQUIN [Suspect]
     Indication: PNEUMONIA
     Dosage: 500MG QDAY IV
     Route: 042
     Dates: start: 20101005, end: 20101006
  2. DUONEB [Concomitant]
  3. ZOSYN [Concomitant]
  4. ZOFRAN [Concomitant]
  5. COREG [Concomitant]
  6. MORPHINE [Concomitant]
  7. PRILOSEC [Concomitant]
  8. SYNTHROID [Concomitant]
  9. AMBIEN [Concomitant]
  10. LOMOTIL [Concomitant]
  11. PREDNISONE [Concomitant]
  12. LOVENOX [Concomitant]

REACTIONS (1)
  - INFUSION SITE ERYTHEMA [None]
